FAERS Safety Report 4707821-6 (Version None)
Quarter: 2005Q2

REPORT INFORMATION
  Report Type: 
  Country: None (occurrence: None)
  Receive Date: 20050629
  Receipt Date: 20050307
  Transmission Date: 20051028
  Serious: No
  Sender: FDA-Public Use
  Company Number: 05P-163-0292973-00

PATIENT
  Age: 58 Year
  Sex: Female
  Weight: 74.8435 kg

DRUGS (5)
  1. HUMIRA [Suspect]
     Indication: RHEUMATOID ARTHRITIS
     Dosage: 40 MG, 1 IN 2 WK, SUBCUTANEOUS
     Route: 058
     Dates: start: 20050307
  2. PYRIDOSTIGMINE BROMIDE [Concomitant]
  3. XANTAC [Concomitant]
  4. PREDNISONE [Concomitant]
  5. LEFLUNOMIDE [Concomitant]

REACTIONS (1)
  - INJECTION SITE IRRITATION [None]
